FAERS Safety Report 9844806 (Version 1)
Quarter: 2014Q1

REPORT INFORMATION
  Report Type: Spontaneous
  Country: IN (occurrence: None)
  Receive Date: 20140122
  Receipt Date: 20140122
  Transmission Date: 20141002
  Serious: Yes (Other)
  Sender: FDA-Public Use
  Company Number: INT_00359_2014

PATIENT
  Sex: Female

DRUGS (7)
  1. CEFEPIME [Suspect]
     Indication: URINARY TRACT INFECTION
     Dosage: 5 DAYS UNTIL(INFUSION), (TEST DONE) (1G
  2. PHENYTOIN (PHENYTOIN) [Suspect]
     Indication: GRAND MAL CONVULSION
     Dosage: 3 DAYS UNTIL (DF INTRAVENOUS)
  3. POLYMYXINE [Concomitant]
  4. AMIKACIN [Concomitant]
  5. ETHABUTOL [Concomitant]
  6. LEVETIRACETAM [Concomitant]
  7. TIGECYCLINE [Concomitant]

REACTIONS (12)
  - Stevens-Johnson syndrome [None]
  - Grand mal convulsion [None]
  - Escherichia urinary tract infection [None]
  - Urinary tract infection bacterial [None]
  - Klebsiella infection [None]
  - Multiple-drug resistance [None]
  - Acinetobacter infection [None]
  - Collagen-vascular disease [None]
  - Dermatitis [None]
  - Tinea versicolour [None]
  - Urinary tract infection pseudomonal [None]
  - Vomiting [None]
